FAERS Safety Report 10396325 (Version 2)
Quarter: 2014Q4

REPORT INFORMATION
  Report Type: Spontaneous
  Country: US (occurrence: US)
  Receive Date: 20140820
  Receipt Date: 20141030
  Transmission Date: 20150528
  Serious: Yes (Hospitalization, Other)
  Sender: FDA-Public Use
  Company Number: US-009507513-1408USA010724

PATIENT
  Sex: Female
  Weight: 59.41 kg

DRUGS (2)
  1. NUVARING [Suspect]
     Active Substance: ETHINYL ESTRADIOL\ETONOGESTREL
     Indication: MENSTRUATION IRREGULAR
     Dosage: UNK
     Route: 067
     Dates: start: 200908
  2. MAXALT [Concomitant]
     Active Substance: RIZATRIPTAN BENZOATE
     Indication: MIGRAINE
     Dosage: UNK

REACTIONS (5)
  - Pulmonary embolism [Unknown]
  - Migraine [Unknown]
  - Coagulation time prolonged [Recovered/Resolved]
  - Vaginal prolapse [Unknown]
  - Off label use [Unknown]

NARRATIVE: CASE EVENT DATE: 200908
